FAERS Safety Report 4760770-X (Version None)
Quarter: 2005Q3

REPORT INFORMATION
  Report Type: 
  Country: None (occurrence: None)
  Receive Date: 20050826
  Receipt Date: 20050110
  Transmission Date: 20060218
  Serious: Yes (Death)
  Sender: FDA-Public Use
  Company Number: USA-2005-0018331

PATIENT
  Age: 63 Year
  Sex: Male
  Weight: 104.3 kg

DRUGS (14)
  1. OXYCONTIN [Suspect]
  2. HYDROCODONE (HYDROCODONE) [Suspect]
  3. ROXICODONE (OXYCODONE HYDROCHLRIDE) [Suspect]
  4. ALPRAZOLAM [Suspect]
  5. HYDROXYZINE [Suspect]
  6. PAROXETINE HCL [Suspect]
  7. ACETAMINOPHEN [Suspect]
  8. DIHYDROCODEINE (DIHYDROCODEINE) [Suspect]
  9. LEVETIRACETAM [Suspect]
  10. BUPIVACAINE [Suspect]
  11. PROMETHAZINE [Suspect]
  12. OXYCODONE HCL [Suspect]
  13. CAFFEINE [Concomitant]
  14. THEOBROMINE [Concomitant]

REACTIONS (2)
  - ACCIDENTAL OVERDOSE [None]
  - MULTIPLE DRUG OVERDOSE [None]
